FAERS Safety Report 4642326-2 (Version None)
Quarter: 2005Q2

REPORT INFORMATION
  Report Type: 
  Country: None (occurrence: None)
  Receive Date: 20050421
  Receipt Date: 20050421
  Transmission Date: 20051028
  Serious: Yes (Other)
  Sender: FDA-Public Use
  Company Number: None

PATIENT
  Age: 73 Year
  Sex: Female
  Weight: 62.5964 kg

DRUGS (1)
  1. AVANDAMET [Suspect]
     Indication: DIABETES MELLITUS
     Dosage: 500 MG  TWICE A DAY
     Dates: start: 20040401, end: 20050331

REACTIONS (4)
  - ALOPECIA [None]
  - ANAEMIA [None]
  - LETHARGY [None]
  - MALAISE [None]
